FAERS Safety Report 25523809 (Version 1)
Quarter: 2025Q3

REPORT INFORMATION
  Report Type: Report from Study
  Country: US (occurrence: US)
  Receive Date: 20250707
  Receipt Date: 20250707
  Transmission Date: 20251021
  Serious: Yes (Hospitalization, Other)
  Sender: ABBVIE
  Company Number: US-ABBVIE-6354817

PATIENT
  Age: 72 Year
  Sex: Female

DRUGS (1)
  1. CREON [Suspect]
     Active Substance: PANCRELIPASE AMYLASE\PANCRELIPASE LIPASE\PANCRELIPASE PROTEASE
     Indication: Product used for unknown indication
     Route: 048
     Dates: start: 20241015

REACTIONS (8)
  - Liver abscess [Unknown]
  - Hepatic infection [Unknown]
  - Dehydration [Unknown]
  - Gastrointestinal gangrene [Unknown]
  - Hospitalisation [Not Recovered/Not Resolved]
  - Cystitis [Unknown]
  - Hospitalisation [Recovered/Resolved]
  - Hospitalisation [Recovered/Resolved]

NARRATIVE: CASE EVENT DATE: 20250401
